FAERS Safety Report 24563006 (Version 2)
Quarter: 2024Q4

REPORT INFORMATION
  Report Type: Report from Study
  Country: US (occurrence: US)
  Receive Date: 20241030
  Receipt Date: 20241213
  Transmission Date: 20250115
  Serious: Yes (Death, Other)
  Sender: ACADIA PHARMACEUTICALS
  Company Number: US-ACADIA PHARMACEUTICALS INC.-ACA-2024-PIM-006493

PATIENT
  Age: 79 Year
  Sex: Male

DRUGS (13)
  1. NUPLAZID [Suspect]
     Active Substance: PIMAVANSERIN TARTRATE
     Indication: Parkinson^s disease
     Dosage: 34 MILLIGRAM, QD
     Route: 048
     Dates: start: 20240606, end: 20241127
  2. NUPLAZID [Suspect]
     Active Substance: PIMAVANSERIN TARTRATE
     Indication: Hallucination
  3. BUPROPION [Concomitant]
     Active Substance: BUPROPION
     Dosage: 300 MILLIGRAM ER
  4. COQ [Concomitant]
     Dosage: 50 MILLIGRAM
  5. GLIMEPIRIDE [Concomitant]
     Active Substance: GLIMEPIRIDE
     Dosage: 4 MILLIGRAM
  6. JARDIANCE [Concomitant]
     Active Substance: EMPAGLIFLOZIN
     Dosage: 25 MILLIGRAM
  7. KRILL OIL [Concomitant]
     Active Substance: DIETARY SUPPLEMENT\KRILL OIL
     Dosage: 500 MILLIGRAM
  8. LASIX [Concomitant]
     Active Substance: FUROSEMIDE
     Dosage: 20 MILLIGRAM
  9. LEVOTHYROXINE [Concomitant]
     Active Substance: LEVOTHYROXINE
     Dosage: 50 MICROGRAM
  10. RISPERIDONE [Concomitant]
     Active Substance: RISPERIDONE
     Dosage: 3 MILLIGRAM
  11. ROSUVASTATIN [Concomitant]
     Active Substance: ROSUVASTATIN
     Dosage: 20 MILLIGRAM
  12. MORNIFLUMATE [Concomitant]
     Active Substance: MORNIFLUMATE
     Dosage: 0.4 MG
  13. RYTARY [Concomitant]
     Active Substance: CARBIDOPA\LEVODOPA
     Dosage: 23.75 MG-95 MG

REACTIONS (2)
  - Death [Fatal]
  - Drug ineffective [Recovered/Resolved]

NARRATIVE: CASE EVENT DATE: 20241127
